FAERS Safety Report 16287320 (Version 6)
Quarter: 2019Q3

REPORT INFORMATION
  Report Type: Report from Study
  Country: US (occurrence: US)
  Receive Date: 20190508
  Receipt Date: 20190912
  Transmission Date: 20191004
  Serious: Yes (Life-Threatening, Hospitalization)
  Sender: FDA-Public Use
  Company Number: US-ACTELION-A-US2018-181957

PATIENT
  Age: 1 Year
  Sex: Male
  Weight: 9.52 kg

DRUGS (18)
  1. LEVOTHYROXINE. [Concomitant]
     Active Substance: LEVOTHYROXINE
  2. BOSENTAN TABLET 32 MG PED US [Suspect]
     Active Substance: BOSENTAN
     Dosage: 15.6 MG, BID
     Route: 048
  3. ALDACTAZIDE [Concomitant]
     Active Substance: HYDROCHLOROTHIAZIDE\SPIRONOLACTONE
     Dosage: 7.5 MG, BID
  4. ASPIRIN. [Concomitant]
     Active Substance: ASPIRIN
     Dosage: 40.5 MG, QD
  5. CLOPIDOGREL [Concomitant]
     Active Substance: CLOPIDOGREL BISULFATE
  6. LASIX [Concomitant]
     Active Substance: FUROSEMIDE
     Dosage: 15 MG, QD
  7. SENNOSIDES A+B [Concomitant]
     Active Substance: SENNOSIDES A AND B
  8. ATROVENT [Concomitant]
     Active Substance: IPRATROPIUM BROMIDE
  9. KEPPRA [Concomitant]
     Active Substance: LEVETIRACETAM
  10. BOSENTAN TABLET 32 MG PED US [Suspect]
     Active Substance: BOSENTAN
     Indication: PULMONARY HYPERTENSION
     Dosage: 16.25 MG, BID
     Route: 048
     Dates: start: 20180106
  11. BOSENTAN TABLET 32 MG PED US [Suspect]
     Active Substance: BOSENTAN
     Dosage: 16 MG, Q12HRS
     Route: 048
  12. SILDENAFIL. [Concomitant]
     Active Substance: SILDENAFIL
     Dosage: 5 MG, TID
  13. LOSARTAN. [Concomitant]
     Active Substance: LOSARTAN
  14. FLOVENT [Concomitant]
     Active Substance: FLUTICASONE PROPIONATE
  15. REVATIO [Concomitant]
     Active Substance: SILDENAFIL CITRATE
     Dosage: 15 MG, TID
  16. PREDNISOLONE. [Concomitant]
     Active Substance: PREDNISOLONE
  17. BOSENTAN TABLET 32 MG PED US [Suspect]
     Active Substance: BOSENTAN
     Dosage: 16 MG, BID
     Route: 048
  18. CARVEDILOL. [Concomitant]
     Active Substance: CARVEDILOL
     Dosage: 1.5 MG, BID

REACTIONS (15)
  - Pneumonia aspiration [Unknown]
  - Pneumonia [Recovered/Resolved]
  - Seizure [Unknown]
  - Acute respiratory failure [Unknown]
  - Pulmonary vein stenosis [Unknown]
  - Hypoxia [Recovering/Resolving]
  - Cardiac arrest [Recovered/Resolved]
  - Lung disorder [Unknown]
  - Pulmonary arterial hypertension [Unknown]
  - Tracheal disorder [Recovered/Resolved]
  - Oxygen saturation decreased [Recovered/Resolved]
  - Congenital megacolon [Unknown]
  - Respiratory distress [Recovered/Resolved]
  - Cyanosis [Unknown]
  - Dyspnoea [Recovering/Resolving]

NARRATIVE: CASE EVENT DATE: 20181104
